FAERS Safety Report 16971642 (Version 2)
Quarter: 2020Q2

REPORT INFORMATION
  Report Type: Spontaneous
  Country: US (occurrence: US)
  Receive Date: 20191029
  Receipt Date: 20200410
  Transmission Date: 20200713
  Serious: Yes (Life-Threatening, Hospitalization)
  Sender: FDA-Public Use
  Company Number: US-TEVA-2019-US-1128805

PATIENT
  Age: 74 Year
  Sex: Female

DRUGS (6)
  1. ENTINOSTAT [Concomitant]
     Active Substance: ENTINOSTAT
     Indication: OVARIAN CANCER STAGE IV
     Route: 065
  2. DOCETAXEL. [Suspect]
     Active Substance: DOCETAXEL
     Indication: OVARIAN CANCER STAGE IV
     Route: 065
  3. CARBOPLATIN. [Suspect]
     Active Substance: CARBOPLATIN
     Indication: OVARIAN CANCER STAGE IV
     Route: 065
  4. AVELUMAB [Suspect]
     Active Substance: AVELUMAB
     Indication: OVARIAN CANCER STAGE IV
     Route: 065
  5. ENTINOSTAT [Concomitant]
     Active Substance: ENTINOSTAT
     Indication: OVARIAN CANCER STAGE IV
     Route: 065
  6. LIPOSOMAL DOXORUBICIN [Suspect]
     Active Substance: DOXORUBICIN HYDROCHLORIDE
     Indication: OVARIAN CANCER STAGE IV
     Dosage: 3 CYCLES
     Route: 065

REACTIONS (8)
  - Sensory disturbance [Unknown]
  - Myasthenia gravis [Recovering/Resolving]
  - Respiratory failure [Recovering/Resolving]
  - Hypoventilation [Recovered/Resolved]
  - Neuropathy peripheral [Unknown]
  - Areflexia [Unknown]
  - Axonal neuropathy [Unknown]
  - Myopathy [Unknown]
